FAERS Safety Report 6986719-7 (Version None)
Quarter: 2010Q3

REPORT INFORMATION
  Report Type: 
  Country: None (occurrence: None)
  Receive Date: 20100915
  Receipt Date: 20090818
  Transmission Date: 20110219
  Serious: No
  Sender: FDA-Public Use
  Company Number: US-WYE-H10413409

PATIENT
  Sex: Male
  Weight: 95.34 kg

DRUGS (7)
  1. PRISTIQ [Suspect]
     Indication: DEPRESSION
     Route: 048
     Dates: start: 20090705
  2. PERCOCET [Concomitant]
  3. IBUPROFEN [Concomitant]
  4. FLURAZEPAM [Concomitant]
  5. DALMANE [Concomitant]
  6. MORPHINE SULFATE [Concomitant]
  7. SIMVASTATIN [Concomitant]

REACTIONS (3)
  - CONTUSION [None]
  - MENTAL DISORDER [None]
  - TEARFULNESS [None]
